FAERS Safety Report 5176910-7 (Version None)
Quarter: 2006Q4

REPORT INFORMATION
  Report Type: 
  Country: None (occurrence: None)
  Receive Date: 20061212
  Receipt Date: 20061212
  Transmission Date: 20070319
  Serious: No
  Sender: FDA-Public Use
  Company Number: None

PATIENT
  Age: 38 Year
  Sex: Female
  Weight: 76.6579 kg

DRUGS (3)
  1. MEDROL [Suspect]
     Indication: DERMATITIS
     Dosage: 5 DAY SUPPLY AS DIRECTED P.O.
     Route: 048
     Dates: start: 20060906
  2. NYSTATIN [Concomitant]
  3. TRIAMICINOLONE [Concomitant]

REACTIONS (1)
  - CONVULSION [None]
